FAERS Safety Report 24460630 (Version 1)
Quarter: 2024Q4

REPORT INFORMATION
  Report Type: Report from Study
  Country: US (occurrence: US)
  Receive Date: 20241018
  Receipt Date: 20241018
  Transmission Date: 20250114
  Serious: No
  Sender: ROCHE
  Company Number: US-ROCHE-3536894

PATIENT
  Age: 22 Year
  Sex: Female

DRUGS (2)
  1. RITUXAN [Suspect]
     Active Substance: RITUXIMAB
     Indication: Orbital myositis
     Dosage: INFUSE 1000MG INTRAVENOUSLY DILUTED IN NS 500ML OVER 4 HOURS , VIAL
     Route: 041
  2. RITUXAN [Suspect]
     Active Substance: RITUXIMAB
     Indication: Rheumatoid arthritis

REACTIONS (1)
  - Visual impairment [Unknown]
